FAERS Safety Report 17081937 (Version 2)
Quarter: 2019Q4

REPORT INFORMATION
  Report Type: Spontaneous
  Country: JP (occurrence: JP)
  Receive Date: 20191127
  Receipt Date: 20191210
  Transmission Date: 20200122
  Serious: Yes (Hospitalization, Other)
  Sender: FDA-Public Use
  Company Number: JP-BRISTOL-MYERS SQUIBB COMPANY-BMS-2019-114010

PATIENT
  Age: 48 Year
  Sex: Female
  Weight: 66.25 kg

DRUGS (5)
  1. LEUPLIN [Concomitant]
     Active Substance: LEUPROLIDE ACETATE
     Indication: UTERINE LEIOMYOMA
     Dosage: 1.88 MILLIGRAM, Q4WK
     Route: 058
     Dates: start: 20190902
  2. THYRADIN S [Concomitant]
     Active Substance: LEVOTHYROXINE SODIUM
     Indication: HYPOTHYROIDISM
     Dosage: 50 MICROGRAM, QD
     Route: 048
  3. LASIX [Concomitant]
     Active Substance: FUROSEMIDE
     Indication: OEDEMA
     Dosage: 20 MILLIGRAM, QD
     Route: 048
  4. OPDIVO [Suspect]
     Active Substance: NIVOLUMAB
     Indication: METASTATIC RENAL CELL CARCINOMA
     Dosage: 240 MG, Q2W
     Route: 041
     Dates: start: 20191111
  5. BIOFERMIN [BACILLUS SUBTILIS;LACTOMIN] [Concomitant]
     Indication: GASTROINTESTINAL DISORDER
     Dosage: 12 MILLIGRAM, PRN
     Route: 048

REACTIONS (1)
  - Ascites [Recovering/Resolving]

NARRATIVE: CASE EVENT DATE: 20191120
